FAERS Safety Report 4346210-3 (Version None)
Quarter: 2004Q1

REPORT INFORMATION
  Report Type: 
  Country: None (occurrence: None)
  Receive Date: 20040325
  Receipt Date: 20031215
  Transmission Date: 20041129
  Serious: No
  Sender: FDA-Public Use
  Company Number: USA031253773

PATIENT
  Sex: Female

DRUGS (2)
  1. FORTEO [Suspect]
     Dates: start: 20031101
  2. BLOOD PRESSURE MEDICATIONS [Concomitant]

REACTIONS (2)
  - HYPERTENSION [None]
  - INJECTION SITE ERYTHEMA [None]
